FAERS Safety Report 9831892 (Version 1)
Quarter: 2014Q1

REPORT INFORMATION
  Report Type: Spontaneous
  Country: US (occurrence: US)
  Receive Date: 20140121
  Receipt Date: 20140121
  Transmission Date: 20141002
  Serious: Yes (Other)
  Sender: FDA-Public Use
  Company Number: US-PFIZER INC-2014015386

PATIENT
  Age: 67 Year
  Sex: Female

DRUGS (1)
  1. SUTENT [Suspect]
     Indication: PAPILLARY THYROID CANCER
     Dosage: 37.5 MG, DAILY (12.5MG 3 TABS DAILY)
     Dates: start: 20130913

REACTIONS (2)
  - Cerebrovascular accident [Unknown]
  - Off label use [Unknown]
